FAERS Safety Report 7926810-1 (Version None)
Quarter: 2011Q4

REPORT INFORMATION
  Report Type: 
  Country: None (occurrence: None)
  Receive Date: 20111118
  Receipt Date: 20111108
  Transmission Date: 20120403
  Serious: Yes (Hospitalization)
  Sender: FDA-Public Use
  Company Number: US-BAYER-2011-077189

PATIENT
  Age: 29 Year
  Sex: Female
  Weight: 77 kg

DRUGS (1)
  1. YASMIN [Suspect]
     Indication: CONTRACEPTION
     Dosage: UNK
     Route: 048
     Dates: start: 20060823, end: 20080730

REACTIONS (6)
  - INJURY [None]
  - PULMONARY EMBOLISM [None]
  - COR PULMONALE [None]
  - CHEST PAIN [None]
  - DYSPNOEA [None]
  - DEEP VEIN THROMBOSIS [None]
